FAERS Safety Report 4600125-1 (Version None)
Quarter: 2005Q1

REPORT INFORMATION
  Report Type: 
  Country: None (occurrence: None)
  Receive Date: 20050307
  Receipt Date: 20050301
  Transmission Date: 20050727
  Serious: Yes (Other)
  Sender: FDA-Public Use
  Company Number: PHEH2005US02669

PATIENT
  Age: 68 Year
  Sex: Female
  Weight: 67 kg

DRUGS (2)
  1. DIOVAN [Suspect]
     Indication: HYPERTENSION
     Dosage: 80 MG, QD
     Route: 048
     Dates: start: 20040801
  2. FLOVENT [Concomitant]
     Indication: ASTHMA
     Dosage: OCCASIONALLY
     Dates: start: 19960101

REACTIONS (2)
  - CATARACT [None]
  - KERATOCONJUNCTIVITIS SICCA [None]
